FAERS Safety Report 8241671-1 (Version None)
Quarter: 2012Q1

REPORT INFORMATION
  Report Type: 
  Country: None (occurrence: None)
  Receive Date: 20120328
  Receipt Date: 20120320
  Transmission Date: 20120608
  Serious: Yes (Other)
  Sender: FDA-Public Use
  Company Number: US-ABBOTT-12P-163-0904378-00

PATIENT
  Sex: Male
  Weight: 103.97 kg

DRUGS (2)
  1. HUMIRA [Suspect]
     Indication: RHEUMATOID ARTHRITIS
     Dates: end: 20111118
  2. HUMIRA [Suspect]
     Dates: start: 20120118

REACTIONS (4)
  - DRUG EFFECT DECREASED [None]
  - OSTEOARTHRITIS [None]
  - PAIN [None]
  - ARTHRALGIA [None]
